FAERS Safety Report 6371216-2 (Version None)
Quarter: 2009Q3

REPORT INFORMATION
  Report Type: 
  Country: None (occurrence: None)
  Receive Date: 20090923
  Receipt Date: 20070501
  Transmission Date: 20100115
  Serious: Yes (Other)
  Sender: FDA-Public Use
  Company Number: US-ASTRAZENECA-2007UW04039

PATIENT
  Age: 48 Year
  Sex: Female
  Weight: 49.4 kg

DRUGS (16)
  1. SEROQUEL [Suspect]
     Indication: INSOMNIA
     Route: 048
     Dates: start: 20010101
  2. SEROQUEL [Suspect]
     Dosage: STRENGTH: 20 MG, 100 MG, 200 MG, 300 MG, 400 MG. DOSE : 20 MG TO 800 MG DAILY
     Route: 048
     Dates: start: 20040204
  3. TRAZODONE [Concomitant]
     Dosage: STRENGTH: 50 MG, 100 MG, 300 MG. DOSE: 100 MG TO 300 MG DAILY
     Route: 048
     Dates: start: 20050614
  4. LIPITOR [Concomitant]
     Route: 048
     Dates: start: 20060130
  5. LISINOPRIL [Concomitant]
     Route: 048
     Dates: start: 20060327
  6. REQUIP [Concomitant]
     Route: 048
     Dates: start: 20060120
  7. OXAPROZIN [Concomitant]
     Route: 048
     Dates: start: 20051028
  8. PREMARIN [Concomitant]
     Dosage: STRENGTH: 1.25 MG, 0.625 MG. DOSE: 1.25 MG TO 1.875 MG DAILY
     Route: 048
     Dates: start: 20031206
  9. PAXIL CR [Concomitant]
     Dosage: STRENGTH: 25 MG, 40 MG. DOSE: 20 MG TO 60 MG DAILY
     Route: 048
     Dates: start: 20031206
  10. ETODOLAC [Concomitant]
     Route: 048
     Dates: start: 20050527
  11. NORTRIPTYLINE HCL [Concomitant]
     Indication: FIBROMYALGIA
     Dosage: STRENGTH: 25 MG, 50 MG. DOSE: 25 MG TO 50 MG DAILY
     Route: 048
     Dates: start: 20070330
  12. AMBIEN [Concomitant]
     Indication: SLEEP DISORDER
     Route: 048
     Dates: start: 20070609
  13. ALBUTEROL [Concomitant]
     Dosage: ONE UNIT, 4 TO 8 PUFFS 4 TIMES A DAY
     Route: 048
     Dates: start: 20070327
  14. AVELOX [Concomitant]
     Route: 048
     Dates: start: 20060620
  15. LUNESTA [Concomitant]
     Indication: SLEEP DISORDER
     Route: 048
     Dates: start: 20060620
  16. LOTREL [Concomitant]
     Dosage: 10/40 ONE DAILY
     Route: 048
     Dates: start: 20060829

REACTIONS (2)
  - DIABETES MELLITUS [None]
  - TARDIVE DYSKINESIA [None]
